FAERS Safety Report 5588313-1 (Version None)
Quarter: 2008Q1

REPORT INFORMATION
  Report Type: 
  Country: None (occurrence: None)
  Receive Date: 20080108
  Receipt Date: 20071230
  Transmission Date: 20080703
  Serious: Yes (Life-Threatening)
  Sender: FDA-Public Use
  Company Number: IL-JNJFOC-20071206124

PATIENT

DRUGS (2)
  1. DECITABINE (DECITABINE) LYOPHILIZED POWDER [Suspect]
     Indication: MYELODYSPLASTIC SYNDROME
     Dosage: 30 MG, INTRAVENOUS
     Route: 042
     Dates: start: 20071118, end: 20071122
  2. DECITABINE (DECITABINE) LYOPHILIZED POWDER [Suspect]
     Indication: MYELODYSPLASTIC SYNDROME
     Dosage: 30 MG, INTRAVENOUS
     Route: 042
     Dates: end: 20071129

REACTIONS (9)
  - CANDIDIASIS [None]
  - HEPATIC CANDIDIASIS [None]
  - LIVER ABSCESS [None]
  - NEUTROPENIA [None]
  - PANCYTOPENIA [None]
  - RENAL ABSCESS [None]
  - SKIN CANDIDA [None]
  - SPLENIC ABSCESS [None]
  - SYSTEMIC CANDIDA [None]
